FAERS Safety Report 9274905 (Version 1)
Quarter: 2013Q2

REPORT INFORMATION
  Report Type: Spontaneous
  Country: NL (occurrence: None)
  Receive Date: 20130429
  Receipt Date: 20130429
  Transmission Date: 20140414
  Serious: Yes (Hospitalization, Other)
  Sender: FDA-Public Use
  Company Number: SYM-2013-03043

PATIENT
  Age: 48 Year
  Sex: Male

DRUGS (4)
  1. METRONIDAZOLE (METRONIDAZOLE) [Suspect]
     Indication: CLOSTRIDIUM DIFFICILE COLITIS
     Route: 048
  2. DISULFIRAM [Suspect]
     Indication: CLOSTRIDIUM DIFFICILE COLITIS
     Route: 048
  3. OMEPRAZOLE (OMEPRAZOLE)(OMEPRAZOLE) [Concomitant]
  4. VANCOMYCIN (VANCOMYCIN) (VANCOMYCIN) [Concomitant]

REACTIONS (5)
  - Psychotic disorder [None]
  - Drug interaction [None]
  - Delusion [None]
  - Insomnia [None]
  - Anxiety [None]
